FAERS Safety Report 9534778 (Version 2)
Quarter: 2013Q3

REPORT INFORMATION
  Report Type: Spontaneous
  Country: US (occurrence: US)
  Receive Date: 20130918
  Receipt Date: 20130918
  Transmission Date: 20140515
  Serious: No
  Sender: FDA-Public Use
  Company Number: US-PURDUE-USA-2011-0080108

PATIENT
  Sex: Female

DRUGS (1)
  1. BUTRANS [Suspect]
     Indication: PAIN
     Dosage: 5 MCG, Q1H
     Route: 062

REACTIONS (7)
  - Pain [Not Recovered/Not Resolved]
  - Headache [Recovered/Resolved]
  - Drug ineffective [Recovered/Resolved]
  - Application site erythema [Not Recovered/Not Resolved]
  - Product adhesion issue [Unknown]
  - Product quality issue [Recovered/Resolved]
  - Application site irritation [Not Recovered/Not Resolved]
